FAERS Safety Report 17405855 (Version 1)
Quarter: 2020Q1

REPORT INFORMATION
  Report Type: Spontaneous
  Country: IT (occurrence: IT)
  Receive Date: 20200212
  Receipt Date: 20200212
  Transmission Date: 20200409
  Serious: Yes (Other)
  Sender: FDA-Public Use
  Company Number: IT-TEVA-2020-IT-1182743

PATIENT
  Age: 79 Year
  Sex: Male

DRUGS (3)
  1. SLOWMET [Suspect]
     Active Substance: METFORMIN HYDROCHLORIDE
     Indication: DIABETES MELLITUS
     Dates: start: 2019
  2. DULOXETINA TEVA ITALIA [Suspect]
     Active Substance: DULOXETINE HYDROCHLORIDE
     Indication: INCONTINENCE
  3. CARDIOASPIRINA [Suspect]
     Active Substance: ASPIRIN
     Route: 065

REACTIONS (3)
  - Faeces discoloured [Unknown]
  - Diabetes mellitus [Unknown]
  - Haematochezia [Unknown]

NARRATIVE: CASE EVENT DATE: 2019
